FAERS Safety Report 5399734-4 (Version None)
Quarter: 2007Q3

REPORT INFORMATION
  Report Type: 
  Country: None (occurrence: None)
  Receive Date: 20070727
  Receipt Date: 20070718
  Transmission Date: 20080115
  Serious: Yes (Other)
  Sender: FDA-Public Use
  Company Number: JP-PFIZER INC-2007060086

PATIENT
  Age: 60 Year
  Sex: Male

DRUGS (2)
  1. SULPERAZON [Suspect]
  2. VOLTAREN [Concomitant]

REACTIONS (1)
  - SHOCK [None]
